FAERS Safety Report 8213043-7 (Version None)
Quarter: 2012Q1

REPORT INFORMATION
  Report Type: 
  Country: None (occurrence: None)
  Receive Date: 20120315
  Receipt Date: 20120307
  Transmission Date: 20120608
  Serious: Yes (Other)
  Sender: FDA-Public Use
  Company Number: US-JNJFOC-20100106388

PATIENT
  Sex: Male
  Weight: 117 kg

DRUGS (12)
  1. TIMOLOL MALEATE [Concomitant]
     Indication: GLAUCOMA
     Route: 047
     Dates: start: 19940101
  2. PREDNISONE TAB [Suspect]
     Indication: PROSTATE CANCER METASTATIC
     Route: 048
     Dates: start: 20090910
  3. HYDROCORTISONE CREAM [Concomitant]
     Indication: ECZEMA
     Route: 061
     Dates: start: 20080101
  4. LEUPROLIDE ACETATE [Concomitant]
     Indication: PROSTATE CANCER
     Route: 030
     Dates: start: 20091008
  5. VASOTEC [Concomitant]
     Indication: HYPERTENSION
     Route: 048
     Dates: start: 19940101
  6. CLONAZEPAM [Concomitant]
     Indication: SLEEP DISORDER
     Route: 048
     Dates: start: 19940101, end: 20091119
  7. MEFENAMIC ACID [Concomitant]
     Indication: MYALGIA
     Route: 048
     Dates: start: 20081101
  8. CLONAZEPAM [Concomitant]
     Indication: PANIC ATTACK
     Route: 048
     Dates: start: 19940101, end: 20091119
  9. ABIRATERONE ACETATE [Suspect]
     Indication: PROSTATE CANCER METASTATIC
     Route: 048
     Dates: start: 20091110
  10. ABIRATERONE ACETATE [Suspect]
     Route: 048
     Dates: start: 20090910, end: 20091022
  11. MULTI-VITAMINS [Concomitant]
     Indication: VITAMIN SUPPLEMENTATION
     Route: 048
     Dates: start: 20090201
  12. LEKOVIT CA [Concomitant]
     Indication: OSTEOPOROSIS PROPHYLAXIS
     Route: 048
     Dates: start: 20090201

REACTIONS (4)
  - ALANINE AMINOTRANSFERASE INCREASED [None]
  - PROSTATIC SPECIFIC ANTIGEN INCREASED [None]
  - ASPARTATE AMINOTRANSFERASE INCREASED [None]
  - BLOOD ALKALINE PHOSPHATASE INCREASED [None]
